FAERS Safety Report 8002313-3 (Version None)
Quarter: 2011Q4

REPORT INFORMATION
  Report Type: 
  Country: None (occurrence: None)
  Receive Date: 20111222
  Receipt Date: 20110404
  Transmission Date: 20120403
  Serious: No
  Sender: FDA-Public Use
  Company Number: US-GLAXOSMITHKLINE-A0921242A

PATIENT
  Age: 66 Year
  Sex: Female

DRUGS (1)
  1. COMMIT [Suspect]
     Indication: EX-TOBACCO USER

REACTIONS (5)
  - TONGUE DISORDER [None]
  - NAUSEA [None]
  - FEELING ABNORMAL [None]
  - ABDOMINAL DISCOMFORT [None]
  - MALAISE [None]
